FAERS Safety Report 14943974 (Version 4)
Quarter: 2019Q2

REPORT INFORMATION
  Report Type: Spontaneous
  Country: ES (occurrence: ES)
  Receive Date: 20180528
  Receipt Date: 20190607
  Transmission Date: 20190711
  Serious: Yes (Hospitalization, Other)
  Sender: FDA-Public Use
  Company Number: ES-GLAXOSMITHKLINE-ES2018090811

PATIENT
  Age: 17 Year
  Sex: Female
  Weight: 82 kg

DRUGS (2)
  1. LAMOTRIGINE. [Suspect]
     Active Substance: LAMOTRIGINE
     Indication: EPILEPSY
     Dosage: 25 MG, BID (1 BOTTLE OF 200 ML)
     Route: 048
     Dates: start: 20180227, end: 20180323
  2. BISOLVON ANTITUSIVO COMPOSITUM [Concomitant]
     Active Substance: DEXTROMETHORPHAN\DIPHENHYDRAMINE
     Indication: CATARRH
     Dosage: UNK (200 ML)
     Route: 048
     Dates: start: 20180319, end: 20180320

REACTIONS (1)
  - Drug reaction with eosinophilia and systemic symptoms [Recovered/Resolved]

NARRATIVE: CASE EVENT DATE: 20180322
